FAERS Safety Report 12586706 (Version 5)
Quarter: 2016Q4

REPORT INFORMATION
  Report Type: Spontaneous
  Country: JP (occurrence: JP)
  Receive Date: 20160725
  Receipt Date: 20161224
  Transmission Date: 20170207
  Serious: Yes (Death, Other)
  Sender: FDA-Public Use
  Company Number: JP-JNJFOC-20160622558

PATIENT
  Age: 7 Decade
  Sex: Male

DRUGS (6)
  1. LAGNOS [Concomitant]
     Route: 048
  2. NEUART [Concomitant]
     Active Substance: ANTITHROMBIN III HUMAN
     Route: 065
  3. ZYTIGA [Suspect]
     Active Substance: ABIRATERONE ACETATE
     Indication: HORMONE-REFRACTORY PROSTATE CANCER
     Route: 048
     Dates: start: 20151128, end: 20160129
  4. PIROMIDIC ACID [Concomitant]
     Active Substance: PIROMIDIC ACID
     Route: 048
  5. PREDNISOLONE. [Concomitant]
     Active Substance: PREDNISOLONE
     Indication: HORMONE-REFRACTORY PROSTATE CANCER
     Route: 048
     Dates: start: 20151128, end: 2016
  6. KAYTWO N [Concomitant]
     Active Substance: MENATETRENONE
     Route: 065

REACTIONS (8)
  - Cytomegalovirus infection [Recovered/Resolved]
  - Fungal infection [Recovered/Resolved]
  - Acute hepatic failure [Fatal]
  - Pneumonia [Not Recovered/Not Resolved]
  - Acute kidney injury [Not Recovered/Not Resolved]
  - Disseminated intravascular coagulation [Not Recovered/Not Resolved]
  - Prostatic specific antigen increased [Unknown]
  - Infection [Unknown]

NARRATIVE: CASE EVENT DATE: 201511
